FAERS Safety Report 13498854 (Version 4)
Quarter: 2017Q2

REPORT INFORMATION
  Report Type: Report from Study
  Country: CO (occurrence: CO)
  Receive Date: 20170501
  Receipt Date: 20170614
  Transmission Date: 20170830
  Serious: Yes (Death, Hospitalization, Other)
  Sender: FDA-Public Use
  Company Number: PHHY2017CO061076

PATIENT
  Age: 58 Year
  Sex: Female
  Weight: 42 kg

DRUGS (4)
  1. AFINITOR [Suspect]
     Active Substance: EVEROLIMUS
     Dosage: 10 MG, QD
     Route: 048
     Dates: start: 20170512
  2. AFINITOR [Suspect]
     Active Substance: EVEROLIMUS
     Indication: NEUROENDOCRINE TUMOUR
     Dosage: 10 MG, QD
     Route: 048
     Dates: start: 20160725
  3. SANDOSTATIN LAR DEPOT [Suspect]
     Active Substance: OCTREOTIDE ACETATE
     Indication: NEUROENDOCRINE TUMOUR
     Dosage: 20 MG, QMO
     Route: 030
     Dates: start: 20150201
  4. SANDOSTATIN LAR DEPOT [Suspect]
     Active Substance: OCTREOTIDE ACETATE
     Dosage: 20 MG, QMO
     Route: 030
     Dates: start: 20170512

REACTIONS (21)
  - Death [Fatal]
  - Dehydration [Recovered/Resolved]
  - Abdominal distension [Recovered/Resolved]
  - Gastrointestinal inflammation [Recovered/Resolved]
  - Syncope [Recovered/Resolved]
  - Neuroendocrine tumour [Recovered/Resolved]
  - Abdominal pain upper [Unknown]
  - Hepatitis [Unknown]
  - Weight decreased [Unknown]
  - Infection [Unknown]
  - Tension [Unknown]
  - Bone decalcification [Unknown]
  - Diarrhoea [Unknown]
  - Pain [Unknown]
  - Urinary tract infection [Recovered/Resolved]
  - Hepatic pain [Unknown]
  - Recurrent cancer [Recovered/Resolved]
  - Malaise [Unknown]
  - Blood pressure decreased [Recovered/Resolved]
  - Vomiting [Unknown]
  - Hyperhidrosis [Unknown]

NARRATIVE: CASE EVENT DATE: 20170611
